FAERS Safety Report 24005919 (Version 1)
Quarter: 2024Q2

REPORT INFORMATION
  Report Type: Spontaneous
  Country: US (occurrence: US)
  Receive Date: 20240624
  Receipt Date: 20240624
  Transmission Date: 20240716
  Serious: No
  Sender: FDA-Public Use
  Company Number: US-PFIZER INC-202400195557

PATIENT
  Age: 15 Year
  Sex: Male
  Weight: 52.16 kg

DRUGS (2)
  1. GENOTROPIN [Suspect]
     Active Substance: SOMATROPIN
     Indication: Growth disorder
     Dosage: 1.6 MG, DAILY
  2. CONCERTA [Concomitant]
     Active Substance: METHYLPHENIDATE HYDROCHLORIDE
     Indication: Attention deficit hyperactivity disorder
     Dosage: TAKES 2X18MG TABLETS
     Route: 048
     Dates: start: 202404

REACTIONS (3)
  - Device use error [Unknown]
  - Poor quality device used [Unknown]
  - Device information output issue [Unknown]
